FAERS Safety Report 7071125-X (Version None)
Quarter: 2010Q4

REPORT INFORMATION
  Report Type: 
  Country: None (occurrence: None)
  Receive Date: 20101029
  Receipt Date: 20101022
  Transmission Date: 20110411
  Serious: No
  Sender: FDA-Public Use
  Company Number: US-PFIZER INC-2010135488

PATIENT
  Sex: Male
  Weight: 163.27 kg

DRUGS (2)
  1. NICOTROL [Suspect]
     Indication: SMOKING CESSATION THERAPY
     Dosage: THREE PUFFS
     Dates: start: 20101022
  2. FENTANYL [Concomitant]
     Indication: ARTHRITIS
     Dosage: UNK

REACTIONS (1)
  - PHARYNGEAL HYPOAESTHESIA [None]
